FAERS Safety Report 4289327-4 (Version None)
Quarter: 2004Q1

REPORT INFORMATION
  Report Type: 
  Country: None (occurrence: None)
  Receive Date: 20040210
  Receipt Date: 20031223
  Transmission Date: 20041129
  Serious: Yes (Death)
  Sender: FDA-Public Use
  Company Number: PHNU2003DE04484

PATIENT
  Age: 53 Year
  Sex: Male
  Weight: 109 kg

DRUGS (5)
  1. CLOZARIL [Suspect]
     Indication: SCHIZOPHRENIA
     Dosage: UP TO 800MG/DAY
     Route: 048
     Dates: start: 20010801
  2. NORVASK [Concomitant]
     Dosage: UNKNOWN
     Route: 048
  3. TREMARIT [Concomitant]
     Dosage: 15MG/DAY
     Route: 048
     Dates: start: 20011001
  4. IMPORTAL [Concomitant]
     Dosage: UNKNOWN
     Route: 048
  5. FELODIPINE [Concomitant]
     Route: 048

REACTIONS (5)
  - BLOOD POTASSIUM DECREASED [None]
  - DEATH [None]
  - FALL [None]
  - SALIVARY HYPERSECRETION [None]
  - WEIGHT INCREASED [None]
